FAERS Safety Report 9498967 (Version 1)
Quarter: 2013Q3

REPORT INFORMATION
  Report Type: Spontaneous
  Country: US (occurrence: US)
  Receive Date: 20130904
  Receipt Date: 20130904
  Transmission Date: 20140515
  Serious: No
  Sender: FDA-Public Use
  Company Number: US-JNJFOC-20130815164

PATIENT
  Age: 55 Year
  Sex: Female
  Weight: 88.45 kg

DRUGS (4)
  1. SANDOZ FENTANYL TRANSDERMAL SYSTEM [Suspect]
     Indication: BACK PAIN
     Route: 062
     Dates: start: 201306
  2. TIZANIDINE [Concomitant]
     Indication: MUSCLE SPASMS
     Route: 048
     Dates: start: 201306
  3. MOBIC [Concomitant]
     Indication: PAIN
     Route: 048
     Dates: start: 201306
  4. NEURONTIN [Concomitant]
     Indication: NERVE INJURY
     Route: 048

REACTIONS (4)
  - Wrong technique in drug usage process [Not Recovered/Not Resolved]
  - Pain [Not Recovered/Not Resolved]
  - Wrong technique in drug usage process [Not Recovered/Not Resolved]
  - Product quality issue [Unknown]
